FAERS Safety Report 19932989 (Version 1)
Quarter: 2021Q4

REPORT INFORMATION
  Report Type: Spontaneous
  Country: US (occurrence: US)
  Receive Date: 20211006
  Receipt Date: 20211006
  Transmission Date: 20220303
  Serious: No
  Sender: FDA-Public Use
  Company Number: None

PATIENT
  Age: 46 Year
  Sex: Female

DRUGS (1)
  1. BENLYSTA [Suspect]
     Active Substance: BELIMUMAB
     Dosage: ?          OTHER FREQUENCY:UNKNOWN;
     Route: 058
     Dates: start: 20210918

REACTIONS (4)
  - Muscular weakness [None]
  - Loss of consciousness [None]
  - Somnolence [None]
  - Somnolence [None]

NARRATIVE: CASE EVENT DATE: 20210918
